FAERS Safety Report 15734348 (Version 3)
Quarter: 2023Q1

REPORT INFORMATION
  Report Type: Spontaneous
  Country: US (occurrence: US)
  Receive Date: 20181218
  Receipt Date: 20230328
  Transmission Date: 20230417
  Serious: No
  Sender: FDA-Public Use
  Company Number: US-PFIZER INC-2018519496

PATIENT
  Age: 49 Year
  Sex: Female
  Weight: 58.957 kg

DRUGS (5)
  1. DOCETAXEL [Suspect]
     Active Substance: DOCETAXEL
     Indication: Breast cancer stage II
     Dosage: 100 MG, CYCLIC (EVERY 3 WEEKS FOR 03 CYCLES)
     Dates: end: 20111118
  2. EFUDEX [Concomitant]
     Active Substance: FLUOROURACIL
     Indication: Chemotherapy
     Dosage: 100 (UNKNOWN UNITS), CYCLIC (3 WEEK INTERVALS FOR 3 CYCLES)
  3. NEOSAR [Concomitant]
     Active Substance: CYCLOPHOSPHAMIDE
     Indication: Chemotherapy
     Dosage: 100 (UNKNOWN UNITS), CYCLIC (3 WEEK INTERVALS FOR 3 CYCLES)
  4. ELLENCE [Concomitant]
     Active Substance: EPIRUBICIN HYDROCHLORIDE
     Indication: Chemotherapy
     Dosage: 100 (UNKNOWN UNITS), CYCLIC (3 WEEK INTERVALS FOR 3 CYCLES)
  5. TAXOTERE [Concomitant]
     Active Substance: DOCETAXEL
     Indication: Chemotherapy
     Dosage: UNK, CYCLIC (03 CYCLES)

REACTIONS (5)
  - Alopecia [Not Recovered/Not Resolved]
  - Hair texture abnormal [Not Recovered/Not Resolved]
  - Hair colour changes [Not Recovered/Not Resolved]
  - Hair disorder [Not Recovered/Not Resolved]
  - Madarosis [Not Recovered/Not Resolved]

NARRATIVE: CASE EVENT DATE: 20110801
